FAERS Safety Report 7546713-4 (Version None)
Quarter: 2011Q2

REPORT INFORMATION
  Report Type: 
  Country: None (occurrence: None)
  Receive Date: 20110607
  Receipt Date: 20110530
  Transmission Date: 20111010
  Serious: Yes (Death)
  Sender: FDA-Public Use
  Company Number: 2009002060

PATIENT
  Age: 72 Year
  Sex: Male

DRUGS (5)
  1. SIMVASTATIN [Concomitant]
  2. ERLOTINIB HYDROCHLORIDE [Suspect]
     Indication: NON-SMALL CELL LUNG CANCER
     Dosage: 150 MG, UID/QID, ORAL
     Route: 048
     Dates: start: 20090512, end: 20090605
  3. FUSIDIC ACID [Suspect]
     Indication: RASH
     Dosage: TOPICAL
     Route: 061
  4. THEOPHYLLINE [Concomitant]
  5. OMEPRAZOLE [Concomitant]

REACTIONS (3)
  - DISEASE PROGRESSION [None]
  - DYSPNOEA [None]
  - NON-SMALL CELL LUNG CANCER METASTATIC [None]
